FAERS Safety Report 23924297 (Version 2)
Quarter: 2024Q2

REPORT INFORMATION
  Report Type: Report from Study
  Country: US (occurrence: US)
  Receive Date: 20240531
  Receipt Date: 20240627
  Transmission Date: 20240716
  Serious: No
  Sender: FDA-Public Use
  Company Number: US-ROCHE-3573595

PATIENT
  Age: 53 Year
  Sex: Male

DRUGS (11)
  1. OCREVUS [Suspect]
     Active Substance: OCRELIZUMAB
     Indication: Primary progressive multiple sclerosis
     Route: 065
     Dates: start: 201801
  2. LIORESAL [Concomitant]
     Active Substance: BACLOFEN
  3. CALCIUM CITRATE [Concomitant]
     Active Substance: CALCIUM CITRATE
  4. VITAMIN D3 [Concomitant]
     Active Substance: CHOLECALCIFEROL
  5. FISH OIL [Concomitant]
     Active Substance: FISH OIL
  6. VIAGRA [Concomitant]
     Active Substance: SILDENAFIL CITRATE
  7. BACLOFEN [Concomitant]
     Active Substance: BACLOFEN
  8. AVONEX [Concomitant]
     Active Substance: INTERFERON BETA-1A
  9. AMPYRA [Concomitant]
     Active Substance: DALFAMPRIDINE
  10. BOTOX [Concomitant]
     Active Substance: ONABOTULINUMTOXINA
  11. TIZANIDINE [Concomitant]
     Active Substance: TIZANIDINE

REACTIONS (3)
  - Musculoskeletal stiffness [Unknown]
  - COVID-19 [Unknown]
  - Amnesia [Unknown]

NARRATIVE: CASE EVENT DATE: 20200101
